FAERS Safety Report 5978891-2 (Version None)
Quarter: 2008Q4

REPORT INFORMATION
  Report Type: 
  Country: None (occurrence: None)
  Receive Date: 20081204
  Receipt Date: 20081128
  Transmission Date: 20090506
  Serious: Yes (Hospitalization)
  Sender: FDA-Public Use
  Company Number: JP-EISAI MEDICAL RESEARCH-E2090-00574-SPO-JP

PATIENT
  Sex: Male

DRUGS (11)
  1. EXCEGRAN [Suspect]
     Indication: EPILEPSY
     Route: 048
     Dates: start: 20080903, end: 20080926
  2. EXCEGRAN [Suspect]
     Indication: PROPHYLAXIS
  3. SALOBEL [Concomitant]
     Indication: HYPERURICAEMIA
     Route: 048
     Dates: end: 20081023
  4. CRESTOR [Concomitant]
     Indication: HYPERCHOLESTEROLAEMIA
     Route: 048
  5. OMEPRAL [Concomitant]
     Indication: GASTRIC ULCER
     Route: 048
  6. PANALDINE [Concomitant]
     Indication: THROMBOSIS PROPHYLAXIS
     Route: 048
  7. PANALDINE [Concomitant]
     Indication: CEREBRAL INFARCTION
  8. NATRIX [Concomitant]
     Indication: HYPERTENSION
     Route: 048
     Dates: start: 20080514
  9. DEPAKENE [Concomitant]
     Indication: EPILEPSY
     Route: 048
     Dates: start: 20080521, end: 20080929
  10. ARTIST [Concomitant]
     Indication: HYPERTENSION
     Route: 048
     Dates: start: 20080524
  11. MAGLAX [Concomitant]
     Indication: CONSTIPATION
     Route: 048
     Dates: start: 20080704, end: 20080929

REACTIONS (1)
  - TOXIC EPIDERMAL NECROLYSIS [None]
